FAERS Safety Report 6130958-4 (Version None)
Quarter: 2009Q1

REPORT INFORMATION
  Report Type: 
  Country: None (occurrence: None)
  Receive Date: 20090323
  Receipt Date: 20090305
  Transmission Date: 20090719
  Serious: Yes (Hospitalization)
  Sender: FDA-Public Use
  Company Number: 188126USA

PATIENT
  Age: 77 Year
  Sex: Female

DRUGS (13)
  1. BISOPROLOL FUMARATE [Suspect]
     Indication: HYPERTENSION
     Dosage: ORAL
     Route: 048
     Dates: end: 20080801
  2. NICORANDIL [Suspect]
     Indication: ARTERIOSCLEROSIS CORONARY ARTERY
     Dosage: ORAL
     Route: 048
     Dates: end: 20080801
  3. NICORANDIL [Suspect]
     Indication: ARTERIOSCLEROSIS CORONARY ARTERY
     Dosage: ORAL
     Route: 048
     Dates: end: 20080801
  4. LANSOPRAZOLE [Suspect]
     Indication: PROPHYLAXIS
     Dosage: ORAL
     Dates: end: 20080801
  5. CAPECITABINE [Suspect]
     Indication: COLON CANCER
     Dosage: 4000 MG (2 IN 1 D) ORAL
     Route: 048
     Dates: start: 20080930
  6. ROPINIROLE HYDROCHLORIDE [Suspect]
     Indication: RESTLESS LEGS SYNDROME
     Dosage: ORAL
     Route: 048
     Dates: start: 20081218
  7. LEVOTHYROXINE SODIUM [Suspect]
     Indication: THYROIDECTOMY
     Dosage: ORAL
     Route: 048
     Dates: start: 20070622
  8. PANTOPRAZOLE SODIUM [Suspect]
     Indication: PROPHYLAXIS
     Dosage: ORAL
     Route: 048
     Dates: start: 20080701, end: 20081201
  9. CALCIUM D3 [Suspect]
     Indication: OSTEOPOROSIS
     Dosage: ORAL
     Route: 048
     Dates: start: 20080701
  10. ENOXAPARIN SODIUM [Suspect]
     Indication: THROMBOSIS
     Dosage: SUBCUTANEOUS
     Route: 058
     Dates: start: 20081201
  11. ESCIN [Concomitant]
  12. CALCIUM CARBONATE [Concomitant]
  13. COLECALCIFEROL [Concomitant]

REACTIONS (5)
  - ASTHENIA [None]
  - FALL [None]
  - FATIGUE [None]
  - VENOUS THROMBOSIS LIMB [None]
  - VERTIGO [None]
